FAERS Safety Report 11104378 (Version 2)
Quarter: 2015Q2

REPORT INFORMATION
  Report Type: Report from Study
  Country: JP (occurrence: JP)
  Receive Date: 20150511
  Receipt Date: 20150526
  Transmission Date: 20150821
  Serious: Yes (Death)
  Sender: FDA-Public Use
  Company Number: JP-SA-2015SA061694

PATIENT
  Age: 77 Year
  Sex: Male

DRUGS (5)
  1. JEVTANA [Suspect]
     Active Substance: CABAZITAXEL
     Indication: PROSTATE CANCER
     Route: 042
     Dates: start: 2015, end: 2015
  2. JEVTANA [Suspect]
     Active Substance: CABAZITAXEL
     Indication: PROSTATE CANCER
     Route: 042
     Dates: start: 20150423, end: 20150423
  3. WARFARIN [Concomitant]
     Active Substance: WARFARIN
  4. JEVTANA [Suspect]
     Active Substance: CABAZITAXEL
     Indication: PROSTATE CANCER
     Route: 042
     Dates: start: 20150205, end: 20150205
  5. G-LASTA [Concomitant]
     Active Substance: PEGFILGRASTIM
     Dates: start: 20150208

REACTIONS (1)
  - Sudden death [Fatal]

NARRATIVE: CASE EVENT DATE: 20150502
